FAERS Safety Report 10700524 (Version 1)
Quarter: 2015Q1

REPORT INFORMATION
  Report Type: Spontaneous
  Country: US (occurrence: None)
  Receive Date: 20150108
  Receipt Date: 20150108
  Transmission Date: 20150721
  Serious: No
  Sender: FDA-Public Use
  Company Number: None

PATIENT
  Age: 10 Year
  Sex: Female

DRUGS (1)
  1. ENBREL [Suspect]
     Active Substance: ETANERCEPT
     Indication: AUTOIMMUNE DISORDER
     Dosage: ENBREL 25MG, TWICE WEEKLY, SUBQ
     Dates: start: 20140908, end: 20141110

REACTIONS (3)
  - Hypoaesthesia [None]
  - Nail bed disorder [None]
  - Lupus endocarditis [None]

NARRATIVE: CASE EVENT DATE: 20141110
